FAERS Safety Report 5749567-1 (Version None)
Quarter: 2008Q2

REPORT INFORMATION
  Report Type: 
  Country: None (occurrence: None)
  Receive Date: 20080522
  Receipt Date: 20080522
  Transmission Date: 20081010
  Serious: Yes (Hospitalization)
  Sender: FDA-Public Use
  Company Number: None

PATIENT
  Age: 80 Year
  Sex: Male
  Weight: 76 kg

DRUGS (2)
  1. ZESTRIL [Suspect]
     Indication: HYPERTENSION
     Dosage: PO
     Route: 048
  2. LASIX [Suspect]
     Dosage: PO
     Route: 048

REACTIONS (3)
  - CONVULSION [None]
  - HYPOTENSION [None]
  - RENAL FAILURE ACUTE [None]
